FAERS Safety Report 8814417 (Version 2)
Quarter: 2012Q4

REPORT INFORMATION
  Report Type: 
  Country: US (occurrence: US)
  Receive Date: 20120928
  Receipt Date: 20121101
  Transmission Date: 20130627
  Serious: Yes (Other)
  Sender: FDA-Public Use
  Company Number: US-BAYER-2012-099859

PATIENT
  Age: 33 Year
  Sex: Female
  Weight: 79.37 kg

DRUGS (4)
  1. MIRENA [Suspect]
     Indication: CONTRACEPTION
     Dosage: 20 mcg/24hr, CONT
     Route: 015
     Dates: start: 20120913, end: 20120920
  2. VICODIN [Concomitant]
     Indication: PAIN
  3. MISOPROSTOL [Concomitant]
  4. VALIUM [Concomitant]

REACTIONS (4)
  - Uterine perforation [Recovered/Resolved]
  - Pelvic pain [Recovered/Resolved]
  - Abdominal pain [Recovered/Resolved]
  - Post procedural haemorrhage [Recovered/Resolved]
